FAERS Safety Report 26150980 (Version 1)
Quarter: 2025Q4

REPORT INFORMATION
  Report Type: Spontaneous
  Country: JP (occurrence: JP)
  Receive Date: 20251212
  Receipt Date: 20251212
  Transmission Date: 20260118
  Serious: Yes (Hospitalization)
  Sender: BIOVITRUM
  Company Number: JP-AstraZeneca-CH-01011048A

PATIENT

DRUGS (1)
  1. SYNAGIS [Suspect]
     Active Substance: PALIVIZUMAB
     Indication: Respiratory syncytial virus infection
     Route: 030

REACTIONS (2)
  - Drug ineffective [Unknown]
  - Respiratory syncytial virus infection [Unknown]
